FAERS Safety Report 5256087-X (Version None)
Quarter: 2007Q1

REPORT INFORMATION
  Report Type: 
  Country: None (occurrence: None)
  Receive Date: 20070302
  Receipt Date: 20070302
  Transmission Date: 20070707
  Serious: Yes (Death, Life-Threatening)
  Sender: FDA-Public Use
  Company Number: None

PATIENT
  Sex: Male

DRUGS (1)
  1. GADOLINIUM CONTRAST AGENT [BRAND NOT RECORDED] [Suspect]
     Indication: ANGIOGRAM
     Dates: start: 20040511

REACTIONS (1)
  - ILL-DEFINED DISORDER [None]
